FAERS Safety Report 7249661-2 (Version None)
Quarter: 2011Q1

REPORT INFORMATION
  Report Type: 
  Country: None (occurrence: None)
  Receive Date: 20110128
  Receipt Date: 20110121
  Transmission Date: 20110831
  Serious: Yes (Hospitalization, Other)
  Sender: FDA-Public Use
  Company Number: US-JNJFOC-20110106154

PATIENT
  Sex: Male

DRUGS (2)
  1. DURAGESIC-50 [Suspect]
     Indication: ILL-DEFINED DISORDER
     Route: 062
  2. DURAGESIC-50 [Suspect]
     Route: 062

REACTIONS (4)
  - HOSPITALISATION [None]
  - SPINAL DISORDER [None]
  - PRODUCT QUALITY ISSUE [None]
  - PAIN [None]
